FAERS Safety Report 25788027 (Version 2)
Quarter: 2025Q3

REPORT INFORMATION
  Report Type: Report from Study
  Country: EU (occurrence: EU)
  Receive Date: 20250910
  Receipt Date: 20250917
  Transmission Date: 20251020
  Serious: Yes (Death, Life-Threatening, Hospitalization)
  Sender: JOHNSON AND JOHNSON
  Company Number: EU-JNJFOC-20250911443

PATIENT
  Age: 51 Year
  Sex: Male
  Weight: 91.0 kg

DRUGS (4)
  1. TECLISTAMAB [Suspect]
     Active Substance: TECLISTAMAB
     Indication: Plasma cell myeloma
     Dates: start: 20240326
  2. TECLISTAMAB [Suspect]
     Active Substance: TECLISTAMAB
     Dates: start: 20240328
  3. TECLISTAMAB [Suspect]
     Active Substance: TECLISTAMAB
     Dates: start: 20240401
  4. DEXAMETHASONE (WEEKLY) [Concomitant]
     Indication: Plasma cell myeloma
     Dates: start: 20240415, end: 20241223

REACTIONS (1)
  - Sepsis [Fatal]

NARRATIVE: CASE EVENT DATE: 20241230
